FAERS Safety Report 7578015-4 (Version None)
Quarter: 2011Q2

REPORT INFORMATION
  Report Type: 
  Country: None (occurrence: None)
  Receive Date: 20110628
  Receipt Date: 20110622
  Transmission Date: 20111010
  Serious: Yes (Other)
  Sender: FDA-Public Use
  Company Number: GB-ROCHE-785613

PATIENT
  Sex: Female

DRUGS (3)
  1. ACCUTANE [Suspect]
     Route: 065
     Dates: start: 20110511
  2. ACCUTANE [Suspect]
     Route: 065
     Dates: start: 20110524
  3. YASMIN [Concomitant]
     Route: 065

REACTIONS (1)
  - INFECTIOUS MONONUCLEOSIS [None]
